FAERS Safety Report 5977031-3 (Version None)
Quarter: 2008Q4

REPORT INFORMATION
  Report Type: 
  Country: None (occurrence: None)
  Receive Date: 20081124
  Receipt Date: 20081114
  Transmission Date: 20090506
  Serious: Yes (Life-Threatening)
  Sender: FDA-Public Use
  Company Number: CLOF-1000345

PATIENT
  Sex: Male

DRUGS (3)
  1. EVOLTRA (CLOFARABINE) SOLUTION FOR INFUSION [Suspect]
     Indication: ACUTE LEUKAEMIA
  2. DAUNORUBICIN HCL [Concomitant]
  3. MYLOTARG [Concomitant]

REACTIONS (5)
  - CARDIAC FAILURE [None]
  - HYPOTENSION [None]
  - RENAL FAILURE ACUTE [None]
  - SEPSIS [None]
  - TUMOUR LYSIS SYNDROME [None]
